FAERS Safety Report 7003360-0 (Version None)
Quarter: 2010Q3

REPORT INFORMATION
  Report Type: 
  Country: None (occurrence: None)
  Receive Date: 20100920
  Receipt Date: 20100902
  Transmission Date: 20110219
  Serious: No
  Sender: FDA-Public Use
  Company Number: US-PFIZER INC-2010111980

PATIENT
  Sex: Male
  Weight: 70.3 kg

DRUGS (12)
  1. VIAGRA [Suspect]
     Indication: ERECTILE DYSFUNCTION
     Dosage: 100 MG, AS NEEDED
     Route: 048
     Dates: start: 20080101
  2. CARDURA [Concomitant]
     Dosage: 4 MG, UNK
  3. PERSANTINE [Concomitant]
     Indication: CEREBROVASCULAR ACCIDENT
     Dosage: 75 MG, UNK
  4. ATENOLOL [Concomitant]
     Dosage: 12.5 MG, UNK
  5. LISINOPRIL [Concomitant]
     Dosage: 40 MG, UNK
  6. HYDROCHLOROTHIAZIDE [Concomitant]
     Dosage: 12.5 MG, UNK
  7. ALLOPURINOL [Concomitant]
     Dosage: 100 MG, UNK
  8. ASPIRIN [Concomitant]
     Dosage: 81 MG, UNK
  9. CENTRUM SILVER [Concomitant]
     Dosage: UNK
  10. PRILOSEC [Concomitant]
     Indication: HIATUS HERNIA
     Dosage: 20 MG, UNK
  11. CRESTOR [Concomitant]
     Indication: BLOOD CHOLESTEROL INCREASED
     Dosage: UNK
  12. AMLODIPINE [Concomitant]
     Dosage: UNK

REACTIONS (7)
  - ABDOMINAL DISTENSION [None]
  - ABDOMINAL PAIN UPPER [None]
  - DIARRHOEA [None]
  - DRUG INEFFECTIVE [None]
  - EXPIRED DRUG ADMINISTERED [None]
  - NAUSEA [None]
  - VOMITING [None]
